FAERS Safety Report 10060761 (Version 1)
Quarter: 2014Q2

REPORT INFORMATION
  Report Type: Spontaneous
  Country: IT (occurrence: IT)
  Receive Date: 20140404
  Receipt Date: 20140404
  Transmission Date: 20141212
  Serious: Yes (Other)
  Sender: FDA-Public Use
  Company Number: PHHY2014IT039717

PATIENT
  Age: 42 Year
  Sex: Female

DRUGS (2)
  1. METHOTREXATE [Suspect]
     Indication: ABORTION INDUCED
     Dosage: 50 MG, UNK
     Route: 030
  2. METHOTREXATE [Suspect]
     Dosage: 50 MG, UNK
     Route: 012

REACTIONS (7)
  - Vaginal haemorrhage [Recovered/Resolved]
  - Gastrointestinal disorder [Unknown]
  - Muscle spasms [Unknown]
  - Pyrexia [Unknown]
  - Abdominal pain [Unknown]
  - Maternal exposure during pregnancy [Unknown]
  - Drug effect incomplete [Unknown]
